FAERS Safety Report 6552552-3 (Version None)
Quarter: 2010Q1

REPORT INFORMATION
  Report Type: 
  Country: None (occurrence: None)
  Receive Date: 20100126
  Receipt Date: 20100113
  Transmission Date: 20100710
  Serious: Yes (Other)
  Sender: FDA-Public Use
  Company Number: JP-PFIZER INC-2009310250

PATIENT
  Age: 59 Year
  Sex: Male

DRUGS (4)
  1. SEIBULE [Suspect]
     Indication: DIABETES MELLITUS
     Dosage: UNK MG, UNK
     Route: 048
     Dates: start: 20090905
  2. AMARYL [Concomitant]
     Dosage: 4 MG, UNK
     Route: 048
  3. TOLBUTAMIDE [Concomitant]
     Dosage: 100 MG, UNK
     Route: 048
  4. MYSLEE [Concomitant]
     Dosage: 10 MG, UNK
     Route: 048

REACTIONS (1)
  - HAEMATOCHEZIA [None]
